FAERS Safety Report 8531859-4 (Version None)
Quarter: 2012Q3

REPORT INFORMATION
  Report Type: 
  Country: None (occurrence: None)
  Receive Date: 20120723
  Receipt Date: 20120709
  Transmission Date: 20120928
  Serious: Yes (Death)
  Sender: FDA-Public Use
  Company Number: US-MYLANLABS-2009S1018015

PATIENT
  Age: 49 Year
  Sex: Female
  Weight: 81.65 kg

DRUGS (9)
  1. SEROQUEL [Concomitant]
  2. CYMBALTA [Concomitant]
  3. HYDROCODONE BITARTRATE AND ACETAMINOPHEN [Concomitant]
     Dosage: TID  10MG/325MG
  4. XANAX [Concomitant]
  5. ENABLEX [Concomitant]
  6. TOPROL-XL [Concomitant]
  7. LASIX [Concomitant]
  8. PREMPRO [Concomitant]
     Dosage: 0.625MG/2.5MG
  9. FENTANYL-100 [Suspect]
     Indication: MUSCULOSKELETAL PAIN
     Dosage: CHANGE Q3D
     Route: 062
     Dates: end: 20070922

REACTIONS (2)
  - OVERDOSE [None]
  - TOXICITY TO VARIOUS AGENTS [None]
